FAERS Safety Report 5579244-1 (Version None)
Quarter: 2007Q4

REPORT INFORMATION
  Report Type: 
  Country: None (occurrence: None)
  Receive Date: 20071130
  Receipt Date: 20070723
  Transmission Date: 20080405
  Serious: No
  Sender: FDA-Public Use
  Company Number: US200707005684

PATIENT
  Age: 61 Year
  Sex: Male

DRUGS (4)
  1. BYETTA [Suspect]
     Indication: TYPE 2 DIABETES MELLITUS
     Dosage: 5 UG, 2/D, SUBCUTANEOUS
     Route: 058
     Dates: start: 20070713
  2. METFORMIN HCL [Concomitant]
  3. PRANDIN /USA/ (REPAGLINIDE [Concomitant]
  4. LANTUS [Concomitant]

REACTIONS (6)
  - ABNORMAL FAECES [None]
  - DECREASED APPETITE [None]
  - DIARRHOEA [None]
  - DIZZINESS [None]
  - FLATULENCE [None]
  - WEIGHT DECREASED [None]
